FAERS Safety Report 9217707 (Version 1)
Quarter: 2013Q2

REPORT INFORMATION
  Report Type: Spontaneous
  Country: US (occurrence: US)
  Receive Date: 20130408
  Receipt Date: 20130408
  Transmission Date: 20140414
  Serious: Yes (Hospitalization)
  Sender: FDA-Public Use
  Company Number: US-ASTRAZENECA-2013SE20702

PATIENT
  Age: 48 Year
  Sex: Female

DRUGS (4)
  1. SEROQUEL [Suspect]
     Route: 048
  2. FENTANYL [Suspect]
     Route: 040
  3. PROZAC [Suspect]
     Route: 065
  4. ZYVOX [Suspect]
     Route: 065
     Dates: start: 20130213

REACTIONS (8)
  - Serotonin syndrome [Unknown]
  - Blood pressure increased [Unknown]
  - Blood pressure increased [Unknown]
  - Adverse event [Unknown]
  - Pyrexia [Unknown]
  - Heart rate increased [Unknown]
  - Asthma [Unknown]
  - Depression [Unknown]
